FAERS Safety Report 9014304 (Version 1)
Quarter: 2013Q1

REPORT INFORMATION
  Report Type: Spontaneous
  Country: US (occurrence: US)
  Receive Date: 20130115
  Receipt Date: 20130115
  Transmission Date: 20140127
  Serious: Yes (Hospitalization)
  Sender: FDA-Public Use
  Company Number: US-BAYER-2013-003876

PATIENT
  Age: 35 Year
  Sex: Female
  Weight: 67.12 kg

DRUGS (3)
  1. YAZ [Suspect]
  2. GIANVI [Suspect]
  3. SUMATRIPTAN [Concomitant]
     Dosage: 100 MG, UNK
     Dates: start: 20120502, end: 20120607

REACTIONS (1)
  - Pulmonary embolism [None]
